FAERS Safety Report 6017807-X (Version None)
Quarter: 2008Q4

REPORT INFORMATION
  Report Type: 
  Country: None (occurrence: None)
  Receive Date: 20081223
  Receipt Date: 20081215
  Transmission Date: 20090506
  Serious: Yes (Other)
  Sender: FDA-Public Use
  Company Number: DE-SANOFI-SYNTHELABO-A04200801447

PATIENT
  Age: 75 Year
  Sex: Male

DRUGS (4)
  1. CHOLESTEROL INHIBITOR [Concomitant]
     Dosage: UNK
     Route: 048
  2. FOLINIC ACID [Suspect]
     Indication: PANCREATIC CARCINOMA
     Route: 041
     Dates: start: 20080101, end: 20080101
  3. FLUOROURACIL [Suspect]
     Indication: PANCREATIC CARCINOMA
     Route: 041
     Dates: start: 20080101, end: 20080101
  4. ELOXATIN [Suspect]
     Indication: PANCREATIC CARCINOMA
     Route: 041
     Dates: start: 20080101, end: 20080101

REACTIONS (1)
  - BLOOD CREATINE PHOSPHOKINASE INCREASED [None]
